FAERS Safety Report 19077930 (Version 11)
Quarter: 2021Q3

REPORT INFORMATION
  Report Type: Report from Study
  Country: GB (occurrence: GB)
  Receive Date: 20210331
  Receipt Date: 20210928
  Transmission Date: 20211014
  Serious: Yes (Death, Hospitalization, Other)
  Sender: FDA-Public Use
  Company Number: GB-ACCORD-220925

PATIENT
  Age: 78 Year
  Sex: Female

DRUGS (48)
  1. DOCETAXEL. [Suspect]
     Active Substance: DOCETAXEL
     Indication: BREAST CANCER METASTATIC
     Route: 042
     Dates: start: 20160226, end: 20160226
  2. TAMOXIFEN [Suspect]
     Active Substance: TAMOXIFEN
     Indication: BREAST CANCER METASTATIC
     Dosage: 20 MILLIGRAM, QD
     Route: 048
     Dates: start: 20180704, end: 20180915
  3. TRASTUZUMAB. [Suspect]
     Active Substance: TRASTUZUMAB
     Indication: BREAST CANCER METASTATIC
     Dosage: 525 MILLIGRAM, Q3WK (LOADING DOSE)
     Route: 041
     Dates: start: 20160225, end: 20160225
  4. BUDESONIDE. [Concomitant]
     Active Substance: BUDESONIDE
     Dosage: 9 MILLIGRAM, QD
     Route: 048
     Dates: start: 20190403, end: 20190523
  5. CALCICHEW D3 FORTE [Concomitant]
     Active Substance: CALCIUM\CHOLECALCIFEROL
     Dosage: 2 DOSAGE FORM, QD
     Route: 048
     Dates: start: 20160323
  6. CANDESARTAN. [Concomitant]
     Active Substance: CANDESARTAN
     Dosage: 8 MILLIGRAM, QD
     Route: 048
  7. GLICLAZIDE [Concomitant]
     Active Substance: GLICLAZIDE
     Dosage: 40 MILLIGRAM, QD
     Route: 048
     Dates: start: 20190620, end: 20190705
  8. MIMPARA [Suspect]
     Active Substance: CINACALCET HYDROCHLORIDE
     Indication: HYPERCALCAEMIA OF MALIGNANCY
     Dosage: 30 MILLIGRAM, QD
     Route: 048
     Dates: start: 20190413, end: 201907
  9. TINZAPARIN/TINZAPARIN SODIUM [Concomitant]
     Active Substance: TINZAPARIN SODIUM
     Dosage: 11000 UNIT, QD
     Route: 058
     Dates: start: 20180915, end: 20181128
  10. DEXAMETHASONE. [Concomitant]
     Active Substance: DEXAMETHASONE
     Indication: PROPHYLAXIS
     Dosage: 16 MILLIGRAM, QD
     Route: 048
     Dates: start: 20160225
  11. CODEINE PHOSPHATE/PARACETAMOL [Concomitant]
     Active Substance: ACETAMINOPHEN\CODEINE PHOSPHATE
     Indication: BACK PAIN
     Dosage: 1 DOSAGE FORM, AS NECESSARY
     Route: 048
  12. DOMPERIDONE [Concomitant]
     Active Substance: DOMPERIDONE
     Dosage: 30 MILLIGRAM, QD
     Route: 048
     Dates: start: 20160225
  13. MACROGOL/MACROGOL STEARATE [Concomitant]
     Active Substance: POLYETHYLENE GLYCOLS
     Dosage: 2 UNK, QD (SACHET)
     Route: 048
  14. OCTASA [Concomitant]
     Active Substance: MESALAMINE
     Indication: GASTROINTESTINAL MOTILITY DISORDER
     Dosage: 2400 MILLIGRAM, QD
     Route: 048
     Dates: start: 20170523, end: 2017
  15. PHOSPHATE SANDOZ [Concomitant]
     Active Substance: SODIUM PHOSPHATE, MONOBASIC, ANHYDROUS
     Indication: BLOOD PHOSPHORUS DECREASED
     Dosage: UNK
     Route: 048
     Dates: start: 20190423, end: 20190425
  16. POTASSIUM BICARBONATE. [Concomitant]
     Active Substance: POTASSIUM BICARBONATE
     Indication: HYPOPHOSPHATAEMIA
     Dosage: 2 DF, 3X/DAY (2 TABLETS )
     Route: 048
     Dates: start: 20190611, end: 20190614
  17. SODIUM BICARBONATE. [Concomitant]
     Active Substance: SODIUM BICARBONATE
     Indication: HYPOPHOSPHATAEMIA
     Dosage: 2 DF, 3X/DAY (2 TABLETS )
     Route: 048
     Dates: start: 20190611, end: 20190614
  18. POTASSIUM [Concomitant]
     Active Substance: POTASSIUM
     Indication: BLOOD POTASSIUM DECREASED
     Dosage: UNK MMOL/L, AS NECESSARY, EVERY 3?4WEEKS FOR 9 CYCLES THEN 3 MONTHS
     Route: 042
     Dates: start: 20190611, end: 20190620
  19. XGEVA [Suspect]
     Active Substance: DENOSUMAB
     Indication: PRODUCT USED FOR UNKNOWN INDICATION
     Dosage: 120 MILLIGRAM, EVERY 3 TO 4 WEEKS
     Route: 058
     Dates: start: 20180110, end: 20190426
  20. METFORMIN [Concomitant]
     Active Substance: METFORMIN HYDROCHLORIDE
     Dosage: 2000 MILLIGRAM, QD
     Route: 048
  21. METOCLOPRAMIDE. [Concomitant]
     Active Substance: METOCLOPRAMIDE
     Dosage: 30 MILLIGRAM, QD
     Route: 048
  22. CINACALCET/CINACALCET HYDROCHLORIDE [Concomitant]
     Active Substance: CINACALCET\CINACALCET HYDROCHLORIDE
     Indication: HYPERCALCAEMIA OF MALIGNANCY
     Dosage: 30 MG, DAILY
     Route: 048
     Dates: start: 20190413, end: 201907
  23. ZOLEDRONIC ACID [Concomitant]
     Active Substance: ZOLEDRONIC ACID
     Dosage: 3.5 MILLIGRAM
     Route: 042
     Dates: start: 20190408, end: 20190408
  24. HUMAN ACTRAPID [Concomitant]
     Active Substance: INSULIN HUMAN
     Dosage: UNK
     Route: 058
     Dates: start: 20190620, end: 20190705
  25. ATORVASTATIN [Concomitant]
     Active Substance: ATORVASTATIN
     Dosage: 20 MILLIGRAM, QD
     Route: 048
  26. BENZYDAMINE [Concomitant]
     Active Substance: BENZYDAMINE
     Indication: GLOSSODYNIA
     Dosage: 5 MILLILITER
     Route: 061
     Dates: start: 20190606, end: 20190705
  27. DOCUSATE [Concomitant]
     Active Substance: DOCUSATE
     Dosage: 400 MILLIGRAM, QD
     Route: 048
  28. LINAGLIPTIN [Concomitant]
     Active Substance: LINAGLIPTIN
     Dosage: 5 MILLIGRAM, QD
     Route: 048
     Dates: start: 201809, end: 201905
  29. MAGNESIUM GLYCEROPHOSPHATE [Concomitant]
     Active Substance: MAGNESIUM GLYCEROPHOSPHATE
     Indication: HYPOMAGNESAEMIA
     Dosage: 12 MILLIMOLE, QD
     Route: 048
     Dates: start: 20160526, end: 20160530
  30. NERATINIB [Suspect]
     Active Substance: NERATINIB
     Indication: HER2 POSITIVE BREAST CANCER
     Dosage: 240 MILLIGRAM, QD
     Route: 048
     Dates: start: 20190403
  31. TAXOTERE [Suspect]
     Active Substance: DOCETAXEL
     Indication: BREAST CANCER METASTATIC
     Dosage: 65 MILLIGRAM, Q3WK
     Route: 042
     Dates: start: 20180226, end: 20180226
  32. FEMARA [Suspect]
     Active Substance: LETROZOLE
     Indication: HER2 POSITIVE BREAST CANCER
     Dosage: 2.5 MG, DAILY, DISCONTINUED DUE TO DISEASE PROGRESSION AND FURTHER ANTICANCER TREATMENT
     Route: 048
     Dates: start: 20160413, end: 20180704
  33. TRAMADOL. [Concomitant]
     Active Substance: TRAMADOL
     Dosage: 200 MILLIGRAM, QD
     Route: 048
     Dates: start: 20160217
  34. ZOPICLONE [Concomitant]
     Active Substance: ZOPICLONE
     Dosage: 3.75 MILLIGRAM, QD
     Route: 048
     Dates: start: 20160217
  35. CHLORHEXIDINE [Concomitant]
     Active Substance: CHLORHEXIDINE
     Indication: PROPHYLAXIS
     Dosage: 0.8 PERCENT, QD
     Route: 048
     Dates: start: 20160225
  36. SODIUM PHOSPHATE MONOBASIC (AN [Concomitant]
     Active Substance: SODIUM PHOSPHATE, MONOBASIC, ANHYDROUS
     Indication: HYPOPHOSPHATAEMIA
     Dosage: 2 DF, 3X/DAY (2 TABLETS )
     Route: 048
     Dates: start: 20190611, end: 20190614
  37. RIVAROXABAN [Concomitant]
     Active Substance: RIVAROXABAN
     Indication: PULMONARY EMBOLISM
     Dosage: UNK, QD
     Route: 048
     Dates: start: 20181128
  38. TRASTUZUMAB/EMTANSINE [Suspect]
     Active Substance: ADO-TRASTUZUMAB EMTANSINE
     Indication: BREAST CANCER METASTATIC
     Dosage: 220 MILLIGRAM, Q3WK
     Route: 042
     Dates: start: 20180928, end: 20190315
  39. AMLODIPINE [Concomitant]
     Active Substance: AMLODIPINE BESYLATE
     Indication: HYPERTENSION
     Dosage: 5 MILLIGRAM, QD
     Route: 048
     Dates: start: 20180915, end: 20190529
  40. DIPROBASE [Concomitant]
     Active Substance: CHLOROCRESOL
     Dosage: UNK
  41. LOPERAMIDE [Concomitant]
     Active Substance: LOPERAMIDE
     Indication: PROPHYLAXIS
     Dosage: 2 MILLIGRAM, AS NECESSARY
     Route: 048
     Dates: start: 20160225
  42. LETROZOLE. [Suspect]
     Active Substance: LETROZOLE
     Indication: HER2 POSITIVE BREAST CANCER
     Dosage: 2.5 MILLIGRAM, QD
     Route: 048
     Dates: start: 20160413, end: 20180704
  43. PERTUZUMAB. [Suspect]
     Active Substance: PERTUZUMAB
     Indication: BREAST CANCER METASTATIC
     Dosage: 840 MILLIGRAM, Q3WK (LOADING DOSE)
     Route: 042
     Dates: start: 20160225, end: 20160225
  44. TRIMETHOPRIM. [Concomitant]
     Active Substance: TRIMETHOPRIM
     Indication: URINARY TRACT INFECTION
     Dosage: UNK
     Route: 048
     Dates: start: 20190412, end: 20190414
  45. SANDO K [Concomitant]
     Dosage: UNK, QD
     Route: 048
     Dates: start: 20160322, end: 20160326
  46. SITAGLIPTIN/SITAGLIPTIN PHOSPHATE [Concomitant]
     Active Substance: SITAGLIPTIN PHOSPHATE
     Dosage: 100 MILLIGRAM, QD
     Route: 048
  47. SODIUM CHLORIDE. [Concomitant]
     Active Substance: SODIUM CHLORIDE
     Route: 042
     Dates: start: 20190508, end: 20190510
  48. DENOSUMAB [Concomitant]
     Active Substance: DENOSUMAB
     Dosage: 120 MG
     Route: 058
     Dates: start: 20180110

REACTIONS (14)
  - Rash pruritic [Recovered/Resolved]
  - Weight decreased [Recovered/Resolved]
  - Pulmonary embolism [Fatal]
  - Disease progression [Fatal]
  - Back pain [Not Recovered/Not Resolved]
  - Urinary tract infection [Recovered/Resolved]
  - Acute kidney injury [Recovered/Resolved]
  - Rectal haemorrhage [Not Recovered/Not Resolved]
  - Decreased appetite [Not Recovered/Not Resolved]
  - Condition aggravated [Unknown]
  - Diarrhoea [Recovered/Resolved]
  - Vomiting [Recovered/Resolved]
  - Hypomagnesaemia [Recovered/Resolved]
  - Cholelithiasis [Not Recovered/Not Resolved]

NARRATIVE: CASE EVENT DATE: 20160413
